FAERS Safety Report 25506071 (Version 1)
Quarter: 2025Q3

REPORT INFORMATION
  Report Type: Spontaneous
  Country: US (occurrence: US)
  Receive Date: 20250702
  Receipt Date: 20250702
  Transmission Date: 20251021
  Serious: Yes (Hospitalization)
  Sender: RADIUS PHARM
  Company Number: US-RADIUS HEALTH, INC.-2024US010322

PATIENT
  Age: 63 Year
  Sex: Female

DRUGS (1)
  1. TYMLOS [Suspect]
     Active Substance: ABALOPARATIDE
     Indication: Product used for unknown indication
     Route: 058
     Dates: start: 20241212

REACTIONS (12)
  - Confusional state [Unknown]
  - Constipation [Unknown]
  - Dry mouth [Unknown]
  - Dysgeusia [Unknown]
  - Nephrolithiasis [Unknown]
  - Back pain [Unknown]
  - Angina pectoris [Unknown]
  - Headache [Unknown]
  - Pyrexia [Unknown]
  - Muscular weakness [Unknown]
  - Weight decreased [Unknown]
  - Spinal pain [Unknown]

NARRATIVE: CASE EVENT DATE: 20241214
